FAERS Safety Report 12553373 (Version 1)
Quarter: 2016Q3

REPORT INFORMATION
  Report Type: Spontaneous
  Country: RU (occurrence: RU)
  Receive Date: 20160713
  Receipt Date: 20160713
  Transmission Date: 20161109
  Serious: Yes (Other)
  Sender: FDA-Public Use
  Company Number: RU-BAYER-2016-132495

PATIENT
  Age: 32 Year
  Sex: Female

DRUGS (3)
  1. YARINA [Suspect]
     Active Substance: DROSPIRENONE\ETHINYL ESTRADIOL
     Indication: POLYCYSTIC OVARIES
     Dosage: UNK
     Dates: start: 2011
  2. PREDNISOLON [Suspect]
     Active Substance: PREDNISOLONE
     Indication: IMMUNE THROMBOCYTOPENIC PURPURA
  3. L-THYROXIN [Suspect]
     Active Substance: LEVOTHYROXINE SODIUM

REACTIONS (14)
  - Nervousness [None]
  - Immune thrombocytopenic purpura [None]
  - Weight increased [None]
  - Dysmenorrhoea [None]
  - General physical health deterioration [None]
  - Angina pectoris [None]
  - Hypothyroidism [None]
  - Exophthalmos [None]
  - Therapeutic response unexpected [None]
  - Autoimmune thyroiditis [None]
  - Abnormal withdrawal bleeding [None]
  - Product use issue [None]
  - Increased appetite [None]
  - Palpitations [None]
